FAERS Safety Report 16581440 (Version 1)
Quarter: 2019Q3

REPORT INFORMATION
  Report Type: Report from Study
  Country: IE (occurrence: IE)
  Receive Date: 20190716
  Receipt Date: 20190716
  Transmission Date: 20191004
  Serious: Yes (Hospitalization)
  Sender: FDA-Public Use
  Company Number: IE-ELI_LILLY_AND_COMPANY-IE201907005331

PATIENT
  Sex: Female

DRUGS (4)
  1. DILTIAZEM. [Concomitant]
     Active Substance: DILTIAZEM
     Dosage: 90 MG, BID
     Route: 065
  2. TERIPARATIDE [Suspect]
     Active Substance: TERIPARATIDE
     Indication: PRODUCT USED FOR UNKNOWN INDICATION
     Dosage: 20 UG, DAILY
     Route: 065
     Dates: start: 20190704
  3. MIRTAZAPINE. [Concomitant]
     Active Substance: MIRTAZAPINE
     Dosage: 30 MG, DAILY
     Route: 065
  4. CANDIST [Concomitant]
     Dosage: 16 MG, DAILY
     Route: 065

REACTIONS (2)
  - Arthralgia [Unknown]
  - Back pain [Unknown]
